FAERS Safety Report 18336173 (Version 3)
Quarter: 2024Q2

REPORT INFORMATION
  Report Type: Report from Study
  Country: FR (occurrence: FR)
  Receive Date: 20201001
  Receipt Date: 20240415
  Transmission Date: 20240715
  Serious: Yes (Hospitalization)
  Sender: FDA-Public Use
  Company Number: FR-SHIRE-FR202031720

PATIENT
  Age: 12 Year
  Sex: Male

DRUGS (11)
  1. TEDUGLUTIDE [Suspect]
     Active Substance: TEDUGLUTIDE
     Indication: Short-bowel syndrome
     Dosage: 1.5 MILLIGRAM, QD
     Route: 042
     Dates: start: 20190605
  2. TEDUGLUTIDE [Suspect]
     Active Substance: TEDUGLUTIDE
     Indication: Short-bowel syndrome
     Dosage: 1.5 MILLIGRAM, QD
     Route: 042
     Dates: start: 20190605
  3. TEDUGLUTIDE [Suspect]
     Active Substance: TEDUGLUTIDE
     Indication: Short-bowel syndrome
     Dosage: 1.5 MILLIGRAM, QD
     Route: 042
     Dates: start: 20190605
  4. TEDUGLUTIDE [Suspect]
     Active Substance: TEDUGLUTIDE
     Indication: Short-bowel syndrome
     Dosage: 1.5 MILLIGRAM, QD
     Route: 042
     Dates: start: 20190605
  5. CLAFORAN [Concomitant]
     Active Substance: CEFOTAXIME SODIUM
     Indication: Urinary tract infection
     Dosage: 1 GRAM, Q8HR
     Route: 042
     Dates: start: 20200627, end: 20200711
  6. VITAMIN A [Concomitant]
     Active Substance: VITAMIN A
     Indication: Vitamin A deficiency
     Dosage: 1 DOSAGE FORM
     Route: 048
     Dates: start: 20200525
  7. CEFIXIME [Concomitant]
     Active Substance: CEFIXIME
     Indication: Urinary tract infection
     Dosage: 200 MILLIGRAM, BID
     Route: 048
     Dates: start: 20200629, end: 20200711
  8. BIONOLYTE GLUCOSE [Concomitant]
     Indication: Blood disorder
     Dosage: 73 MILLILITER
     Route: 042
     Dates: start: 20200520, end: 20200522
  9. VITAMIN D [Concomitant]
     Active Substance: VITAMIN D NOS
     Indication: Rickets
     Dosage: UNK UNK, QD
     Route: 048
     Dates: start: 20221206
  10. DOLIPRANE [Concomitant]
     Active Substance: ACETAMINOPHEN
     Indication: Abdominal pain
     Dosage: UNK
     Route: 048
     Dates: start: 202304
  11. VITAMIN B12 [Concomitant]
     Active Substance: CYANOCOBALAMIN
     Indication: Short-bowel syndrome
     Dosage: 1 DOSAGE FORM, MONTHLY
     Route: 030
     Dates: start: 202205

REACTIONS (1)
  - COVID-19 [Recovered/Resolved]

NARRATIVE: CASE EVENT DATE: 20200520
